FAERS Safety Report 7062740-8 (Version None)
Quarter: 2010Q4

REPORT INFORMATION
  Report Type: 
  Country: None (occurrence: None)
  Receive Date: 20101026
  Receipt Date: 20100202
  Transmission Date: 20110411
  Serious: No
  Sender: FDA-Public Use
  Company Number: US-PFIZER INC-2010017845

PATIENT
  Sex: Female
  Weight: 79.4 kg

DRUGS (6)
  1. LIPITOR [Suspect]
     Indication: BLOOD CHOLESTEROL ABNORMAL
     Dosage: 10 MG, 1X/DAY
  2. ALENDRONIC ACID [Concomitant]
     Dosage: UNK
  3. OSTEO BI-FLEX [Concomitant]
     Dosage: UNK
  4. CALCIUM [Concomitant]
     Dosage: UNK
  5. MELATONIN [Concomitant]
     Dosage: UNK
  6. ALBUTEROL [Concomitant]
     Indication: ASTHMA
     Dosage: FREQUENCY: AS NEEDED,

REACTIONS (1)
  - BLOOD CHOLESTEROL INCREASED [None]
